FAERS Safety Report 7537067-8 (Version None)
Quarter: 2011Q2

REPORT INFORMATION
  Report Type: 
  Country: None (occurrence: None)
  Receive Date: 20110609
  Receipt Date: 20110527
  Transmission Date: 20111010
  Serious: Yes (Disabling)
  Sender: FDA-Public Use
  Company Number: PHHO2011IT08215

PATIENT
  Sex: Male
  Weight: 66 kg

DRUGS (2)
  1. ACUTIL [Concomitant]
  2. TASIGNA [Suspect]
     Indication: CHRONIC MYELOID LEUKAEMIA
     Dosage: 400 MG, BID
     Route: 048
     Dates: start: 20081224, end: 20110507

REACTIONS (1)
  - ARTERIAL DISORDER [None]
